FAERS Safety Report 10565486 (Version 4)
Quarter: 2015Q2

REPORT INFORMATION
  Report Type: Spontaneous
  Country: US (occurrence: US)
  Receive Date: 20141105
  Receipt Date: 20150415
  Transmission Date: 20150821
  Serious: No
  Sender: FDA-Public Use
  Company Number: US-PFIZER INC-2014303621

PATIENT
  Age: 20 Year
  Sex: Female

DRUGS (1)
  1. SUTENT [Suspect]
     Active Substance: SUNITINIB MALATE
     Indication: SOFT TISSUE SARCOMA
     Dosage: 25 MG, DAILY
     Route: 048
     Dates: start: 20141003

REACTIONS (15)
  - Vomiting [Unknown]
  - Abdominal pain upper [Unknown]
  - Heart rate increased [Unknown]
  - Hair colour changes [Unknown]
  - Hyperhidrosis [Unknown]
  - Product use issue [Unknown]
  - Memory impairment [Unknown]
  - Tremor [Unknown]
  - Blood glucose decreased [Unknown]
  - Migraine [Unknown]
  - Skin irritation [Unknown]
  - Decreased appetite [Unknown]
  - Headache [Unknown]
  - Diarrhoea [Unknown]
  - Abdominal discomfort [Unknown]

NARRATIVE: CASE EVENT DATE: 20141003
